FAERS Safety Report 10740148 (Version 2)
Quarter: 2015Q1

REPORT INFORMATION
  Report Type: Spontaneous
  Country: DE (occurrence: DE)
  Receive Date: 20150127
  Receipt Date: 20150219
  Transmission Date: 20150721
  Serious: Yes (Other)
  Sender: FDA-Public Use
  Company Number: DE-DRREDDYS-GER/GER/15/0045533

PATIENT
  Age: 1 Day
  Sex: Female
  Weight: 3.55 kg

DRUGS (4)
  1. OPTIGRAV [Concomitant]
     Indication: PRODUCT USED FOR UNKNOWN INDICATION
     Route: 064
     Dates: start: 20131004, end: 20140722
  2. CITALOPRAM [Suspect]
     Active Substance: CITALOPRAM HYDROBROMIDE
     Indication: PRODUCT USED FOR UNKNOWN INDICATION
     Dosage: 40 [MG/D ]/ DOSAGE REDUCTION FROM GW 36
     Route: 064
     Dates: start: 20131004, end: 20140711
  3. MAGNESIUM [Concomitant]
     Active Substance: MAGNESIUM
     Indication: PRODUCT USED FOR UNKNOWN INDICATION
     Dosage: 525 [MG/D (175) ]
     Route: 064
     Dates: start: 20140522, end: 20140701
  4. CLOTRIMAZOLE. [Concomitant]
     Active Substance: CLOTRIMAZOLE
     Indication: PRODUCT USED FOR UNKNOWN INDICATION
     Route: 064
     Dates: start: 20140220, end: 20140225

REACTIONS (2)
  - Foetal exposure during pregnancy [Unknown]
  - Oxygen saturation abnormal [Recovered/Resolved]

NARRATIVE: CASE EVENT DATE: 20140722
